FAERS Safety Report 21169430 (Version 1)
Quarter: 2022Q3

REPORT INFORMATION
  Report Type: Spontaneous
  Country: NL (occurrence: NL)
  Receive Date: 20220804
  Receipt Date: 20220804
  Transmission Date: 20221027
  Serious: Yes (Disabling, Other)
  Sender: FDA-Public Use
  Company Number: NL-LRB-00822095

PATIENT
  Age: 26 Year
  Sex: Female
  Weight: 75 kg

DRUGS (2)
  1. AMITRIPTYLINE HYDROCHLORIDE [Suspect]
     Active Substance: AMITRIPTYLINE HYDROCHLORIDE
     Indication: Pain
     Dosage: UNK (1 X PER DAY 1 PIECE)
     Route: 065
     Dates: start: 201504, end: 20210707
  2. REMICADE [Concomitant]
     Active Substance: INFLIXIMAB
     Indication: Product used for unknown indication
     Dosage: UNK (SOLUTION FOR INFUSION, 100 MG (MILLIGRAMS))
     Route: 065

REACTIONS (3)
  - Dystonia [Not Recovered/Not Resolved]
  - Muscle spasms [Recovering/Resolving]
  - Tremor [Recovering/Resolving]

NARRATIVE: CASE EVENT DATE: 20200801
